FAERS Safety Report 6926889-X (Version None)
Quarter: 2010Q3

REPORT INFORMATION
  Report Type: 
  Country: None (occurrence: None)
  Receive Date: 20100816
  Receipt Date: 20100702
  Transmission Date: 20110219
  Serious: No
  Sender: FDA-Public Use
  Company Number: US-ABBOTT-10P-163-0655578-00

PATIENT
  Sex: Male
  Weight: 77.18 kg

DRUGS (1)
  1. SIMCOR [Suspect]
     Indication: HYPERLIPIDAEMIA
     Dates: start: 20100623

REACTIONS (5)
  - DIARRHOEA [None]
  - ERYTHEMA [None]
  - FLUSHING [None]
  - GASTROOESOPHAGEAL REFLUX DISEASE [None]
  - HYPERHIDROSIS [None]
